FAERS Safety Report 18456980 (Version 1)
Quarter: 2020Q4

REPORT INFORMATION
  Report Type: Spontaneous
  Country: US (occurrence: US)
  Receive Date: 20201102
  Receipt Date: 20201102
  Transmission Date: 20210114
  Serious: Yes (Disabling)
  Sender: FDA-Public Use
  Company Number: None

PATIENT
  Age: 9 Year
  Sex: Male
  Weight: 23 kg

DRUGS (5)
  1. VISMODEGIB. [Suspect]
     Active Substance: VISMODEGIB
     Indication: MEDULLOBLASTOMA RECURRENT
     Route: 048
     Dates: start: 20170526, end: 20201027
  2. ACETAMINOPHEN. [Concomitant]
     Active Substance: ACETAMINOPHEN
     Dates: start: 20170504
  3. ONDANSETRON [Concomitant]
     Active Substance: ONDANSETRON
     Dates: start: 20160208
  4. BACTRIM PEDIATRIC [Concomitant]
     Dates: start: 20160808
  5. CURCUMIN [Concomitant]
     Active Substance: CURCUMIN
     Dates: start: 20170526

REACTIONS (2)
  - Epiphyses premature fusion [None]
  - Bone development abnormal [None]

NARRATIVE: CASE EVENT DATE: 20201027
